FAERS Safety Report 9476565 (Version 1)
Quarter: 2013Q3

REPORT INFORMATION
  Report Type: Spontaneous
  Country: US (occurrence: US)
  Receive Date: 20130826
  Receipt Date: 20130826
  Transmission Date: 20140515
  Serious: Yes (Other)
  Sender: FDA-Public Use
  Company Number: US-ROXANE LABORATORIES, INC.-2013-RO-01393RO

PATIENT
  Sex: Female

DRUGS (2)
  1. CITALOPRAM [Suspect]
     Indication: DEPRESSION
     Dosage: 20 MG
     Dates: start: 2005, end: 2010
  2. PAROXETINE [Suspect]
     Indication: DEPRESSION
     Dosage: 20 MG
     Dates: end: 2005

REACTIONS (1)
  - Alcoholism [Recovered/Resolved]
